FAERS Safety Report 4431688-7 (Version None)
Quarter: 2004Q3

REPORT INFORMATION
  Report Type: 
  Country: None (occurrence: None)
  Receive Date: 20040825
  Receipt Date: 20040818
  Transmission Date: 20050211
  Serious: Yes (Hospitalization)
  Sender: FDA-Public Use
  Company Number: GB-JNJFOC-20040805676

PATIENT
  Sex: Female

DRUGS (11)
  1. REMICADE [Suspect]
     Indication: RHEUMATOID ARTHRITIS
     Route: 042
  2. METHOTREXATE [Concomitant]
  3. PREDNISOLONE [Concomitant]
  4. LOSEC [Concomitant]
  5. FOSAMAX [Concomitant]
  6. CALCIUM [Concomitant]
  7. HYPROMELLOSE [Concomitant]
  8. AQUEOUS CREAM [Concomitant]
     Route: 003
  9. AQUEOUS CREAM [Concomitant]
     Route: 003
  10. AQUEOUS CREAM [Concomitant]
     Route: 003
  11. FOLIC ACID [Concomitant]

REACTIONS (3)
  - DIARRHOEA [None]
  - FOOD POISONING [None]
  - VOMITING [None]
